FAERS Safety Report 19380107 (Version 2)
Quarter: 2021Q3

REPORT INFORMATION
  Report Type: Spontaneous
  Country: SE (occurrence: SE)
  Receive Date: 20210607
  Receipt Date: 20210719
  Transmission Date: 20211014
  Serious: Yes (Other)
  Sender: FDA-Public Use
  Company Number: SE-ORGANON-O2106SWE000399

PATIENT
  Age: 18 Year

DRUGS (4)
  1. VITRAKVI [Suspect]
     Active Substance: LAROTRECTINIB
     Indication: SARCOMA
     Dosage: 100 MILLIGRAM, QD, STRENGTH REPORTED : 20 MG/ML
     Dates: start: 20210218
  2. VITRAKVI [Suspect]
     Active Substance: LAROTRECTINIB
     Dosage: 75 MILLIGRAM, STRENGTH REPORTED : 20 MG/ML
     Dates: start: 20210527
  3. VITRAKVI [Suspect]
     Active Substance: LAROTRECTINIB
     Indication: SARCOMA
     Dosage: UNK
     Dates: end: 202001
  4. MONTELUKAST SODIUM. [Suspect]
     Active Substance: MONTELUKAST SODIUM
     Dosage: UNK
     Dates: start: 202104, end: 202105

REACTIONS (3)
  - Mental disorder [Recovered/Resolved]
  - Asthma [Recovered/Resolved]
  - Multiple allergies [Recovered/Resolved]

NARRATIVE: CASE EVENT DATE: 202001
